FAERS Safety Report 5429447-1 (Version None)
Quarter: 2007Q3

REPORT INFORMATION
  Report Type: 
  Country: None (occurrence: None)
  Receive Date: 20070829
  Receipt Date: 20070820
  Transmission Date: 20080115
  Serious: Yes (Death)
  Sender: FDA-Public Use
  Company Number: BR-JNJFOC-20061006813

PATIENT
  Age: 79 Year
  Sex: Male
  Weight: 64 kg

DRUGS (9)
  1. RAZADYNE ER [Suspect]
     Indication: DEMENTIA ALZHEIMER'S TYPE
     Route: 048
  2. PROLOPA [Concomitant]
     Indication: PARKINSON'S DISEASE
     Route: 048
  3. ALDAZIDA [Concomitant]
     Indication: CARDIAC FAILURE
     Route: 048
  4. DIVELOL [Concomitant]
     Indication: CARDIAC FAILURE
     Route: 048
  5. MACRODANTINA [Concomitant]
     Indication: URINARY TRACT INFECTION
  6. ASPIRIN [Concomitant]
     Indication: CARDIAC FAILURE
  7. BENERVA [Concomitant]
     Indication: VITAMIN SUPPLEMENTATION
  8. REMERON [Concomitant]
     Indication: ANTIDEPRESSANT THERAPY
  9. GINKO BILOBA [Concomitant]
     Indication: CARDIOVASCULAR DISORDER

REACTIONS (3)
  - APATHY [None]
  - DEATH [None]
  - PROSTRATION [None]
